FAERS Safety Report 13644080 (Version 1)
Quarter: 2017Q2

REPORT INFORMATION
  Report Type: Report from Study
  Country: CA (occurrence: CA)
  Receive Date: 20170612
  Receipt Date: 20170612
  Transmission Date: 20170830
  Serious: Yes (Other)
  Sender: FDA-Public Use
  Company Number: CA-HLSUS-2017-CA-000561

PATIENT
  Sex: Male

DRUGS (11)
  1. TYLENOL [Concomitant]
     Active Substance: ACETAMINOPHEN
     Indication: PAIN
     Dosage: 1000 MG AS NEEDED EVERY 4 HRS UP TO 4 DOSES/DAY
     Route: 048
  2. LORAZEPAM. [Concomitant]
     Active Substance: LORAZEPAM
     Dosage: 2 MG EVERY 30 MIN AS NEEDED UP TO 6 DOSES PER DAY
  3. FLUOXETINE [Concomitant]
     Active Substance: FLUOXETINE HYDROCHLORIDE
     Dosage: 20 MG PER DAY
  4. MINERAL OIL DROPS [Concomitant]
     Dosage: BOTH EARS DAILY BED TIME
  5. LUVOX [Concomitant]
     Active Substance: FLUVOXAMINE MALEATE
     Dosage: STARTED AT 25 MG (OCT 12) AND INCREASED TO 50 MG (OCT 18)
  6. CLINDOXYL [Concomitant]
     Active Substance: BENZOYL PEROXIDE\CLINDAMYCIN PHOSPHATE
  7. STIEVA CREAM [Concomitant]
     Dosage: DAILY BED TIME
  8. OMEGA 3 [Concomitant]
     Active Substance: OMEGA-3 FATTY ACIDS
     Dosage: 1 TABLET THREE TIMES A DAY
     Dates: start: 200909
  9. VITAMIN D [Concomitant]
     Active Substance: CHOLECALCIFEROL
     Dosage: DAILY MORNING
  10. CLOZARIL [Suspect]
     Active Substance: CLOZAPINE
     Route: 048
     Dates: start: 20100127
  11. EPIVAL [Concomitant]
     Active Substance: DIVALPROEX SODIUM
     Dosage: 500 MG 3 TIMES A DAY

REACTIONS (12)
  - Blount^s disease [Unknown]
  - Skin infection [Recovered/Resolved]
  - Headache [Unknown]
  - Bipolar disorder [Unknown]
  - Intellectual disability [Unknown]
  - Ear infection [Unknown]
  - Schizophrenia [Unknown]
  - Dental caries [Unknown]
  - Panic disorder [Unknown]
  - Obsessive-compulsive disorder [Unknown]
  - Vomiting [Unknown]
  - Autism spectrum disorder [Unknown]
